FAERS Safety Report 7543456-8 (Version None)
Quarter: 2011Q2

REPORT INFORMATION
  Report Type: 
  Country: None (occurrence: None)
  Receive Date: 20110524
  Receipt Date: 20110317
  Transmission Date: 20111010
  Serious: No
  Sender: FDA-Public Use
  Company Number: 022255

PATIENT
  Sex: Female

DRUGS (1)
  1. CIMZIA [Suspect]
     Indication: CROHN'S DISEASE
     Dosage: (400 MG 1X/MONTH SUBCUTANEOUS)
     Route: 058
     Dates: start: 20101020

REACTIONS (13)
  - CROHN'S DISEASE [None]
  - PAIN [None]
  - VISUAL IMPAIRMENT [None]
  - BACK PAIN [None]
  - INFECTION [None]
  - WHITE BLOOD CELL COUNT INCREASED [None]
  - GASTROINTESTINAL PAIN [None]
  - DIZZINESS [None]
  - SYNCOPE [None]
  - FLUSHING [None]
  - NAUSEA [None]
  - MALAISE [None]
  - FATIGUE [None]
